FAERS Safety Report 4717602-5 (Version None)
Quarter: 2005Q3

REPORT INFORMATION
  Report Type: 
  Country: None (occurrence: None)
  Receive Date: 20050712
  Receipt Date: 20050421
  Transmission Date: 20060218
  Serious: No
  Sender: FDA-Public Use
  Company Number: 2005S1000081

PATIENT
  Sex: Female
  Weight: 56 kg

DRUGS (5)
  1. CUBICIN [Suspect]
     Indication: OSTEOMYELITIS
     Dosage: 250 MG; IV
     Route: 042
  2. CUBICIN [Suspect]
     Indication: STAPHYLOCOCCAL INFECTION
     Dosage: 250 MG; IV
     Route: 042
  3. RIFAMPIN [Concomitant]
  4. VANCOMYCIN [Concomitant]
  5. GENTAMICIN [Concomitant]

REACTIONS (2)
  - LUNG INFILTRATION [None]
  - PYREXIA [None]
